FAERS Safety Report 6241857-1 (Version None)
Quarter: 2009Q2

REPORT INFORMATION
  Report Type: 
  Country: None (occurrence: None)
  Receive Date: 20090623
  Receipt Date: 20090611
  Transmission Date: 20091009
  Serious: Yes (Hospitalization)
  Sender: FDA-Public Use
  Company Number: GB-PFIZER INC-2009192141

PATIENT
  Age: 64 Year

DRUGS (16)
  1. SUNITINIB MALATE [Suspect]
     Indication: BREAST CANCER FEMALE
     Dosage: 37.5 MG, 1X/DAY
     Route: 048
     Dates: start: 20081120
  2. DOCETAXEL [Suspect]
     Indication: BREAST CANCER FEMALE
     Dosage: 75 MG/M2, 130MG, EVERY 3 WEEKS
     Route: 042
     Dates: start: 20081119, end: 20081211
  3. DOCETAXEL [Suspect]
     Dosage: 60 MG/M2, 100MG, EVERY 3 WEEKS
     Dates: start: 20081212
  4. ATENOLOL [Concomitant]
     Indication: HYPERTENSION
     Dosage: 25 MG, 1X/DAY
     Dates: start: 20030101
  5. OXYCODONE HYDROCHLORIDE [Concomitant]
     Indication: PAIN
     Dosage: 40 MG, 1X/DAY
     Dates: start: 20081107
  6. OXYCODONE HYDROCHLORIDE [Concomitant]
     Dosage: 5 MG, 4X/DAY, AS NEEDED
     Dates: start: 20081107
  7. ZOPICLONE [Concomitant]
     Indication: INSOMNIA
     Dosage: 3.75 MG, 1X/DAY
     Dates: start: 20080506
  8. ZOLEDRONIC ACID [Concomitant]
     Indication: METASTASES TO BONE
     Dosage: 1000 MG, 1X/DAY
     Dates: start: 20081117
  9. RANITIDINE [Concomitant]
     Indication: DYSPEPSIA
     Dosage: 150 MG, 2X/DAY
     Dates: start: 20080506
  10. DEXAMETHASONE [Concomitant]
     Indication: PREMEDICATION
     Dosage: 8 MG, 2X/DAY
     Dates: start: 20081118, end: 20081120
  11. CYCLIZINE [Concomitant]
     Indication: NAUSEA
     Dosage: 50 MG, 3X/DAY
     Dates: start: 20081107
  12. METOCLOPRAMIDE [Concomitant]
     Indication: PREMEDICATION
     Dosage: 10 MG, SINGLE
     Dates: start: 20081119, end: 20081119
  13. LENOGRASTIM [Concomitant]
     Indication: PROPHYLAXIS
     Dosage: 263 UG, 1X/DAY
     Dates: start: 20081121, end: 20081125
  14. CIPROFLOXACIN [Concomitant]
     Indication: PROPHYLAXIS
     Dosage: 250 MG, 2X/DAY
     Dates: start: 20081121
  15. PHOSPHATE-SANDOZ [Concomitant]
     Indication: HYPOPHOSPHATAEMIA
     Dosage: 1000 MG, 2X/DAY
     Dates: start: 20080206, end: 20080210
  16. CALCEOS [Concomitant]
     Dosage: 1000 MG, 1X/DAY
     Dates: start: 20081117

REACTIONS (3)
  - ATRIAL FIBRILLATION [None]
  - INFECTION [None]
  - NEUTROPENIA [None]
